FAERS Safety Report 6288355-7 (Version None)
Quarter: 2009Q3

REPORT INFORMATION
  Report Type: 
  Country: None (occurrence: None)
  Receive Date: 20090729
  Receipt Date: 20090722
  Transmission Date: 20100115
  Serious: Yes (Life-Threatening, Hospitalization, Other)
  Sender: FDA-Public Use
  Company Number: ZA-CELGENEUS-143-50794-09070188

PATIENT
  Sex: Male
  Weight: 108 kg

DRUGS (12)
  1. VIDAZA [Suspect]
     Route: 058
     Dates: start: 20090611, end: 20090618
  2. VIDAZA [Suspect]
     Route: 058
     Dates: start: 20090520, end: 20090527
  3. VIDAZA [Suspect]
     Route: 058
     Dates: start: 20090410, end: 20090417
  4. VIDAZA [Suspect]
     Route: 058
     Dates: start: 20090302, end: 20090309
  5. ACTRAPHANE [Concomitant]
     Route: 058
  6. PANTELOC [Concomitant]
     Route: 048
  7. NEXIUM [Concomitant]
     Route: 048
  8. ASPIRIN [Concomitant]
     Indication: HYPERTENSION
     Route: 048
  9. LOSARTAN POTASSIUM [Concomitant]
     Indication: HYPERTENSION
     Route: 048
  10. FUROSEMIDE [Concomitant]
     Indication: HYPERTENSION
     Route: 048
     Dates: end: 20090501
  11. ATORVASTATIN [Concomitant]
     Indication: HYPERCHOLESTEROLAEMIA
     Route: 048
  12. METFORMIN [Concomitant]
     Route: 048

REACTIONS (1)
  - RENAL IMPAIRMENT [None]
